FAERS Safety Report 12349217 (Version 2)
Quarter: 2016Q2

REPORT INFORMATION
  Report Type: Report from Study
  Country: US (occurrence: US)
  Receive Date: 20160509
  Receipt Date: 20160629
  Transmission Date: 20160815
  Serious: Yes (Hospitalization)
  Sender: FDA-Public Use
  Company Number: PHEH2016US010612

PATIENT
  Age: 66 Year
  Sex: Female
  Weight: 74.83 kg

DRUGS (4)
  1. SINGULAIR [Concomitant]
     Active Substance: MONTELUKAST SODIUM
     Indication: PRODUCT USED FOR UNKNOWN INDICATION
     Dosage: 1 DF, QD (AT NIGHT)
     Route: 065
  2. BENADRYL [Concomitant]
     Active Substance: DIPHENHYDRAMINE HYDROCHLORIDE
     Indication: MULTIPLE ALLERGIES
     Dosage: DAILY MORNING AND NIGHT
     Route: 065
  3. ZYRTEC [Concomitant]
     Active Substance: CETIRIZINE HYDROCHLORIDE
     Indication: MULTIPLE ALLERGIES
     Dosage: DAILY MORNING AND NIGHT
     Route: 065
  4. COSENTYX [Suspect]
     Active Substance: SECUKINUMAB
     Indication: PRODUCT USED FOR UNKNOWN INDICATION
     Dosage: 150 MG, UNK
     Route: 065
     Dates: start: 201602

REACTIONS (10)
  - Pneumonia bacterial [Unknown]
  - Abnormal loss of weight [Unknown]
  - Fatigue [Unknown]
  - Cough [Unknown]
  - Psoriasis [Unknown]
  - Malaise [Unknown]
  - Pneumonia fungal [Unknown]
  - Skin fissures [Unknown]
  - Gait disturbance [Unknown]
  - Immunodeficiency [Unknown]

NARRATIVE: CASE EVENT DATE: 201604
